FAERS Safety Report 7841783-8 (Version None)
Quarter: 2011Q4

REPORT INFORMATION
  Report Type: 
  Country: None (occurrence: None)
  Receive Date: 20111024
  Receipt Date: 20111024
  Transmission Date: 20120403
  Serious: Yes (Other)
  Sender: FDA-Public Use
  Company Number: None

PATIENT
  Sex: Female
  Weight: 63.5036 kg

DRUGS (3)
  1. CITALOPRAM HYDROBROMIDE [Suspect]
     Indication: OSTEOARTHRITIS
     Dosage: 1 TABLET / 20MG DAILY MOUTH ESTIMATE JULY AUG + SEPT
     Route: 048
  2. CITALOPRAM HYDROBROMIDE [Suspect]
     Indication: STRESS
     Dosage: 1 TABLET / 20MG DAILY MOUTH ESTIMATE JULY AUG + SEPT
     Route: 048
  3. CITALOPRAM HYDROBROMIDE [Suspect]
     Indication: CONDITION AGGRAVATED
     Dosage: 1 TABLET / 20MG DAILY MOUTH ESTIMATE JULY AUG + SEPT
     Route: 048

REACTIONS (6)
  - PAIN IN EXTREMITY [None]
  - AMNESIA [None]
  - TREMOR [None]
  - INSOMNIA [None]
  - PRURITUS [None]
  - PARAESTHESIA [None]
